FAERS Safety Report 6783593-9 (Version None)
Quarter: 2010Q2

REPORT INFORMATION
  Report Type: 
  Country: None (occurrence: None)
  Receive Date: 20100622
  Receipt Date: 20100617
  Transmission Date: 20101027
  Serious: Yes (Hospitalization)
  Sender: FDA-Public Use
  Company Number: US-ROCHE-589352

PATIENT
  Sex: Female
  Weight: 72.7 kg

DRUGS (5)
  1. TOCILIZUMAB [Suspect]
     Indication: RHEUMATOID ARTHRITIS
     Dosage: REPORTED LAST DOSE PRIOR TO SAE: 18 JULY  2008, TOCILIZUMAB WAS TEMPORARILY INTERRUPTED.
     Route: 042
     Dates: start: 20060823
  2. TOCILIZUMAB [Suspect]
     Route: 042
  3. FOLIC ACID [Concomitant]
     Dates: start: 20061101
  4. ADVIL LIQUI-GELS [Concomitant]
     Dates: start: 20040101
  5. CALCIUM CARBONATE [Concomitant]
     Dosage: DRUG NAME REPORTED AS CALCIUM+D
     Dates: start: 20040910

REACTIONS (1)
  - PULMONARY EMBOLISM [None]
